FAERS Safety Report 9475654 (Version 2)
Quarter: 2013Q3

REPORT INFORMATION
  Report Type: Spontaneous
  Country: FR (occurrence: FR)
  Receive Date: 20130826
  Receipt Date: 20130916
  Transmission Date: 20140515
  Serious: Yes (Life-Threatening, Hospitalization)
  Sender: FDA-Public Use
  Company Number: PHHY2013FR091079

PATIENT
  Age: 65 Year
  Sex: Male

DRUGS (9)
  1. LEPONEX [Suspect]
     Indication: IMPULSE-CONTROL DISORDER
     Dosage: 12.5 MG, QD
     Route: 048
     Dates: start: 20130604, end: 20130715
  2. MODOPAR [Suspect]
     Indication: PARKINSON^S DISEASE
     Dosage: 25 MG/ 100 MG (125 MG, 6 TIMES DAILY)
     Route: 048
     Dates: start: 2007, end: 20130607
  3. MODOPAR [Suspect]
     Dosage: 12.5MG/50MG (62.5 MG 6 TIMES DAILY)
     Route: 048
     Dates: end: 20130607
  4. MODOPAR [Suspect]
     Dosage: 50MG/200MG (250 MG, QD)
     Route: 048
     Dates: end: 20130607
  5. MODOPAR [Suspect]
     Dosage: 687.5 MG (125MG QID, 62.5 MG QD, 125 MGQD)
     Route: 048
     Dates: start: 20130607
  6. MOTILIUM [Suspect]
     Indication: NAUSEA
     Dosage: 250 MG, QD
     Route: 048
     Dates: start: 2004
  7. APOKINON [Suspect]
     Indication: PARKINSON^S DISEASE
     Dosage: 50 MG, QD
     Route: 042
     Dates: start: 201305
  8. TRIVASTAL [Suspect]
     Dosage: UNK UKN, UNK
     Route: 061
     Dates: start: 201305
  9. PROCTOLOG [Suspect]
     Indication: PROCTALGIA
     Dosage: 2 DF, QD
     Route: 061
     Dates: start: 201305

REACTIONS (2)
  - Pulmonary infarction [Recovering/Resolving]
  - Pulmonary embolism [Recovering/Resolving]
